FAERS Safety Report 22979904 (Version 2)
Quarter: 2025Q2

REPORT INFORMATION
  Report Type: Spontaneous
  Country: US (occurrence: US)
  Receive Date: 20230925
  Receipt Date: 20250425
  Transmission Date: 20250717
  Serious: No
  Sender: PFIZER
  Company Number: US-PFIZER INC-PV202300159846

PATIENT
  Age: 55 Year
  Sex: Female

DRUGS (25)
  1. MEROPENEM [Suspect]
     Active Substance: MEROPENEM
     Indication: Urinary tract infection
     Dates: start: 202208
  2. BACLOFEN [Concomitant]
     Active Substance: BACLOFEN
  3. PREGABALIN [Concomitant]
     Active Substance: PREGABALIN
  4. MYRBETRIQ [Concomitant]
     Active Substance: MIRABEGRON
  5. KLONOPIN [Concomitant]
     Active Substance: CLONAZEPAM
  6. HIPREX [METHENAMINE HIPPURATE] [Concomitant]
  7. VITAMIN D NOS [Concomitant]
     Active Substance: CHOLECALCIFEROL\ERGOCALCIFEROL
  8. VITAMIN C [Concomitant]
     Active Substance: ASCORBIC ACID
  9. BACITRACIN [Concomitant]
     Active Substance: BACITRACIN
  10. DEMANNOSE [Concomitant]
     Active Substance: DEMANNOSE
  11. DOXYCYCLINE HYCLATE [Concomitant]
     Active Substance: DOXYCYCLINE HYCLATE
  12. DULOXETINE [Concomitant]
     Active Substance: DULOXETINE
  13. FLUCONAZOLE [Concomitant]
     Active Substance: FLUCONAZOLE
  14. GUAIFENESIN [Concomitant]
     Active Substance: GUAIFENESIN
  15. METFORMIN [Concomitant]
     Active Substance: METFORMIN HYDROCHLORIDE
  16. MICONAZOLE [Concomitant]
     Active Substance: MICONAZOLE
  17. MUCINEX [Concomitant]
     Active Substance: GUAIFENESIN
  18. TRAZODONE [Concomitant]
     Active Substance: TRAZODONE HYDROCHLORIDE
  19. CEPHALEXIN [Concomitant]
     Active Substance: CEPHALEXIN
  20. ACETAMINOPHEN [Concomitant]
     Active Substance: ACETAMINOPHEN
  21. DIPHENHYDRAMINE [Concomitant]
     Active Substance: DIPHENHYDRAMINE
  22. METHYLPREDNISOLONE [Concomitant]
     Active Substance: METHYLPREDNISOLONE
  23. ALBUTEROL [Concomitant]
     Active Substance: ALBUTEROL
  24. EPINEPHRINE [Concomitant]
     Active Substance: EPINEPHRINE
  25. FAMOTIDINE [Concomitant]
     Active Substance: FAMOTIDINE

REACTIONS (2)
  - Rash pustular [Not Recovered/Not Resolved]
  - Off label use [Unknown]

NARRATIVE: CASE EVENT DATE: 20220801
